FAERS Safety Report 8912933 (Version 1)
Quarter: 2012Q4

REPORT INFORMATION
  Report Type: 
  Country: FR (occurrence: FR)
  Receive Date: 20121116
  Receipt Date: 20121116
  Transmission Date: 20130627
  Serious: Yes (Hospitalization)
  Sender: FDA-Public Use
  Company Number: FR-GLAXOSMITHKLINE-B0843323A

PATIENT
  Age: 86 Year
  Sex: Female

DRUGS (5)
  1. DEROXAT [Suspect]
     Indication: PRODUCT USED FOR UNKNOWN INDICATION
     Dosage: 20MG Per day
     Route: 048
  2. PREVISCAN [Suspect]
     Indication: PULMONARY EMBOLISM
     Dosage: 20MG Per day
     Route: 048
     Dates: end: 20120904
  3. VASTEN [Concomitant]
     Route: 048
     Dates: end: 201209
  4. ALDACTONE [Concomitant]
     Route: 048
     Dates: end: 201209
  5. LASILIX [Concomitant]
     Route: 048

REACTIONS (9)
  - Rectal haemorrhage [Recovered/Resolved]
  - Red blood cell count decreased [Unknown]
  - Hypotension [Unknown]
  - Malaise [Recovered/Resolved]
  - Tachycardia [Recovered/Resolved]
  - International normalised ratio increased [Recovered/Resolved]
  - Overdose [Unknown]
  - Haemoglobin decreased [None]
  - Cardiac failure [None]
